FAERS Safety Report 10231938 (Version 1)
Quarter: 2014Q2

REPORT INFORMATION
  Report Type: Spontaneous
  Country: US (occurrence: US)
  Receive Date: 20140612
  Receipt Date: 20140612
  Transmission Date: 20141212
  Serious: No
  Sender: FDA-Public Use
  Company Number: US-BIOGENIDEC-2014BI055213

PATIENT
  Age: 53 Year
  Sex: Female

DRUGS (1)
  1. AVONEX [Suspect]
     Indication: MULTIPLE SCLEROSIS
     Route: 030
     Dates: start: 20120802

REACTIONS (5)
  - Road traffic accident [Recovered/Resolved]
  - Rotator cuff syndrome [Recovered/Resolved]
  - Intervertebral disc protrusion [Recovered/Resolved]
  - Ligament sprain [Recovered/Resolved]
  - Meniscus injury [Recovered/Resolved]
